FAERS Safety Report 6969557-0 (Version None)
Quarter: 2010Q3

REPORT INFORMATION
  Report Type: 
  Country: None (occurrence: None)
  Receive Date: 20100907
  Receipt Date: 20100907
  Transmission Date: 20110219
  Serious: Yes (Death)
  Sender: FDA-Public Use
  Company Number: None

PATIENT
  Age: 1 Day
  Sex: Male
  Weight: 3.1752 kg

DRUGS (1)
  1. EFFEXOR XR [Suspect]
     Dosage: 150 MG 1 PER DAY TRANSPLACENTAL
     Route: 064

REACTIONS (3)
  - DEATH NEONATAL [None]
  - MATERNAL DRUGS AFFECTING FOETUS [None]
  - PERSISTENT FOETAL CIRCULATION [None]
